FAERS Safety Report 23410852 (Version 1)
Quarter: 2024Q1

REPORT INFORMATION
  Report Type: Spontaneous
  Country: US (occurrence: US)
  Receive Date: 20240117
  Receipt Date: 20240117
  Transmission Date: 20240410
  Serious: No
  Sender: FDA-Public Use
  Company Number: US-SK LIFE SCIENCE, INC-SKPVG-2023-000220

PATIENT

DRUGS (3)
  1. XCOPRI [Suspect]
     Active Substance: CENOBAMATE
     Indication: Seizure
     Dosage: UNK
     Route: 048
  2. XCOPRI [Suspect]
     Active Substance: CENOBAMATE
     Dosage: 300 MILLIGRAM (TWO 150 MG TABLETS), QD AT BEDTIME
     Dates: end: 20230223
  3. XCOPRI [Suspect]
     Active Substance: CENOBAMATE
     Dosage: SHE STARTED SPLITTING UP HER DOSE ON FRIDAY SO THAT SHE WOULD HAVE SOME FROM SATURDAY (ONE TABLET EA
     Route: 048
     Dates: start: 20230224, end: 20230225

REACTIONS (2)
  - Product dose omission issue [Not Recovered/Not Resolved]
  - Intentional product use issue [Recovered/Resolved]

NARRATIVE: CASE EVENT DATE: 20230224
